FAERS Safety Report 15233556 (Version 1)
Quarter: 2018Q3

REPORT INFORMATION
  Report Type: Spontaneous
  Country: IT (occurrence: IT)
  Receive Date: 20180802
  Receipt Date: 20180802
  Transmission Date: 20181010
  Serious: Yes (Death, Hospitalization, Other)
  Sender: FDA-Public Use
  Company Number: IT-ALLERGAN-1837962US

PATIENT
  Age: 52 Year
  Sex: Female

DRUGS (4)
  1. HYDROCHLOROTHIAZIDE UNK [Suspect]
     Active Substance: HYDROCHLOROTHIAZIDE
     Indication: HYPERTENSION
     Dosage: 25 MG, UNK
     Route: 065
  2. AMLODIPINE [Suspect]
     Active Substance: AMLODIPINE BESYLATE
     Indication: HYPERTENSION
     Dosage: 10 MG, UNK
     Route: 065
  3. RAMIPRIL. [Suspect]
     Active Substance: RAMIPRIL
     Indication: HYPERTENSION
     Dosage: 10 MG, UNK
     Route: 065
  4. DOXAZOSIN [Suspect]
     Active Substance: DOXAZOSIN\DOXAZOSIN MESYLATE
     Indication: HYPERTENSION
     Dosage: 4 MG, UNK
     Route: 065

REACTIONS (14)
  - Personality disorder [Unknown]
  - Panic disorder [Unknown]
  - Memory impairment [Unknown]
  - Metastases to liver [Unknown]
  - Generalised anxiety disorder [Unknown]
  - Insomnia [Unknown]
  - Cardiac arrest [Fatal]
  - Diabetes mellitus [Unknown]
  - Asthenia [Unknown]
  - Drug ineffective [Unknown]
  - Abnormal dreams [Unknown]
  - Weight increased [Unknown]
  - Hypokalaemia [Unknown]
  - Adrenocortical carcinoma [Unknown]
